FAERS Safety Report 11895036 (Version 1)
Quarter: 2016Q1

REPORT INFORMATION
  Report Type: Spontaneous
  Country: US (occurrence: US)
  Receive Date: 20160107
  Receipt Date: 20160107
  Transmission Date: 20160526
  Serious: No
  Sender: FDA-Public Use
  Company Number: US-BAYER-2016-003398

PATIENT
  Age: 79 Year
  Sex: Female
  Weight: 52.15 kg

DRUGS (6)
  1. ALEVE [Suspect]
     Active Substance: NAPROXEN SODIUM
     Dosage: 1 DF, PRN
     Route: 048
  2. OMEGA 3-6-9 [Concomitant]
     Active Substance: FISH OIL
  3. GLUCOSAMINE [Concomitant]
     Active Substance: GLUCOSAMINE
  4. CHONDROITIN [Concomitant]
     Active Substance: CHONDROITIN
  5. MULTIVITAMIN [Concomitant]
     Active Substance: VITAMINS
  6. VITAMIN B3 [Suspect]
     Active Substance: NIACIN

REACTIONS (1)
  - Drug ineffective for unapproved indication [None]

NARRATIVE: CASE EVENT DATE: 2015
